FAERS Safety Report 7048920-6 (Version None)
Quarter: 2010Q4

REPORT INFORMATION
  Report Type: 
  Country: None (occurrence: None)
  Receive Date: 20101008
  Receipt Date: 20100921
  Transmission Date: 20110411
  Serious: Yes (Hospitalization)
  Sender: FDA-Public Use
  Company Number: CIO10013198

PATIENT
  Sex: Female

DRUGS (1)
  1. DAYQUIL LIQUID, VERSION/FLAVOR UNKNOWN (CHLORPHENAMINE MALEATE UNKNOW [Suspect]
     Dosage: 30 ML, 1 ONLY FOR 1 DAY, ORAL
     Route: 048
     Dates: start: 20100920, end: 20100920

REACTIONS (5)
  - ABDOMINAL PAIN UPPER [None]
  - APPENDICITIS [None]
  - COLD SWEAT [None]
  - EXPIRED DRUG ADMINISTERED [None]
  - NAUSEA [None]
